FAERS Safety Report 18038963 (Version 4)
Quarter: 2025Q2

REPORT INFORMATION
  Report Type: Spontaneous
  Country: PL (occurrence: PL)
  Receive Date: 20200718
  Receipt Date: 20250621
  Transmission Date: 20250717
  Serious: Yes (Hospitalization, Other)
  Sender: AUROBINDO
  Company Number: PL-ROCHE-2639441

PATIENT
  Age: 28 Year
  Sex: Male

DRUGS (11)
  1. ACYCLOVIR [Suspect]
     Active Substance: ACYCLOVIR
     Indication: Hairy cell leukaemia
     Route: 042
  2. CYCLOSPORINE [Suspect]
     Active Substance: CYCLOSPORINE
     Indication: Prophylaxis against graft versus host disease
     Route: 065
  3. PREGABALIN [Suspect]
     Active Substance: PREGABALIN
     Indication: Hairy cell leukaemia
     Dosage: 75 MILLIGRAM, TWO TIMES A DAY (0.5 DAYS) (150 MG, ONCE A DAY)
     Route: 065
  4. BENDAMUSTINE [Suspect]
     Active Substance: BENDAMUSTINE
     Indication: Hairy cell leukaemia
     Route: 042
  5. THYMOCYTE IMMUNE GLOBULIN NOS [Suspect]
     Active Substance: THYMOCYTE IMMUNE GLOBULIN NOS
     Indication: Hairy cell leukaemia
     Route: 065
  6. CLADRIBINE [Suspect]
     Active Substance: CLADRIBINE
     Indication: Hairy cell leukaemia
     Route: 042
  7. CYCLOPHOSPHAMIDE [Suspect]
     Active Substance: CYCLOPHOSPHAMIDE
     Indication: Hairy cell leukaemia
     Route: 065
  8. INTERFERON ALFA-2A [Suspect]
     Active Substance: INTERFERON ALFA-2A
     Indication: Hairy cell leukaemia
     Route: 065
  9. METHOTREXATE [Suspect]
     Active Substance: METHOTREXATE
     Indication: Prophylaxis against graft versus host disease
     Route: 065
  10. RITUXIMAB [Suspect]
     Active Substance: RITUXIMAB
     Indication: Hairy cell leukaemia
     Route: 065
  11. VEMURAFENIB [Suspect]
     Active Substance: VEMURAFENIB
     Indication: Hairy cell leukaemia
     Dosage: 960 MILLIGRAM, TWO TIMES A DAY (0.5 DAYS, 20 WEEKS)
     Route: 065

REACTIONS (7)
  - Nervous system disorder [Recovering/Resolving]
  - Neurological symptom [Unknown]
  - Neuropathy peripheral [Unknown]
  - Protein total increased [Unknown]
  - Behaviour disorder [Unknown]
  - Neurological decompensation [Recovering/Resolving]
  - Therapeutic product effect incomplete [Recovering/Resolving]
